FAERS Safety Report 10142657 (Version 1)
Quarter: 2014Q2

REPORT INFORMATION
  Report Type: Report from Study
  Country: CL (occurrence: CL)
  Receive Date: 20140430
  Receipt Date: 20140430
  Transmission Date: 20141212
  Serious: Yes (Other)
  Sender: FDA-Public Use
  Company Number: CL-ROCHE-1389330

PATIENT
  Age: 57 Year
  Sex: Female
  Weight: 70 kg

DRUGS (4)
  1. ACTEMRA [Suspect]
     Indication: RHEUMATOID ARTHRITIS
     Route: 042
     Dates: start: 20121207, end: 20140407
  2. CELECOXIB [Suspect]
     Indication: RHEUMATOID ARTHRITIS
     Route: 048
  3. SULFASALAZINE [Suspect]
     Indication: RHEUMATOID ARTHRITIS
     Route: 048
  4. LANSOPRAZOLE [Concomitant]
     Route: 048

REACTIONS (2)
  - Surgery [Recovered/Resolved]
  - Tendon rupture [Recovered/Resolved]
